FAERS Safety Report 10789867 (Version 1)
Quarter: 2015Q1

REPORT INFORMATION
  Report Type: Spontaneous
  Country: US (occurrence: None)
  Receive Date: 20150211
  Receipt Date: 20150211
  Transmission Date: 20150721
  Serious: Yes (Other)
  Sender: FDA-Public Use
  Company Number: None

PATIENT
  Age: 22 Year

DRUGS (1)
  1. REGLAN [Suspect]
     Active Substance: METOCLOPRAMIDE HYDROCHLORIDE

REACTIONS (8)
  - Trismus [None]
  - Heart rate increased [None]
  - Oesophageal spasm [None]
  - Urinary retention [None]
  - Unresponsive to stimuli [None]
  - Drooling [None]
  - Respiratory rate increased [None]
  - Eye movement disorder [None]

NARRATIVE: CASE EVENT DATE: 20150102
